FAERS Safety Report 7383164-X (Version None)
Quarter: 2011Q1

REPORT INFORMATION
  Report Type: 
  Country: None (occurrence: None)
  Receive Date: 20110325
  Receipt Date: 20110325
  Transmission Date: 20110831
  Serious: Yes (Hospitalization)
  Sender: FDA-Public Use
  Company Number: None

PATIENT
  Age: 39 Year
  Sex: Female
  Weight: 100 kg

DRUGS (6)
  1. LISINOPRIL [Concomitant]
  2. GABAPENTIN [Concomitant]
  3. TRAMADOL HCL [Concomitant]
  4. VANCOMYCIN [Suspect]
     Indication: LOCALISED INFECTION
     Dosage: 1250MG Q8H IV RECENT
     Route: 042
  5. NPH INSULIN [Concomitant]
  6. CLINDAMYCIN [Concomitant]

REACTIONS (2)
  - NEPHROPATHY TOXIC [None]
  - RENAL FAILURE ACUTE [None]
